FAERS Safety Report 7385698-0 (Version None)
Quarter: 2011Q1

REPORT INFORMATION
  Report Type: 
  Country: None (occurrence: None)
  Receive Date: 20110322
  Receipt Date: 20110311
  Transmission Date: 20110831
  Serious: Yes (Other)
  Sender: FDA-Public Use
  Company Number: 2011SP011370

PATIENT

DRUGS (1)
  1. TEMOZOLOMIDE [Suspect]
     Indication: ACUTE MYELOID LEUKAEMIA

REACTIONS (1)
  - PNEUMONIA [None]
